FAERS Safety Report 4615690-8 (Version None)
Quarter: 2005Q1

REPORT INFORMATION
  Report Type: 
  Country: None (occurrence: None)
  Receive Date: 20050317
  Receipt Date: 20050217
  Transmission Date: 20050727
  Serious: Yes (Other)
  Sender: FDA-Public Use
  Company Number: 200510492BWH

PATIENT

DRUGS (1)
  1. TRASYLOL [Suspect]

REACTIONS (2)
  - DIFFICULT TO WEAN FROM VENTILATOR [None]
  - RENAL IMPAIRMENT [None]
